FAERS Safety Report 10699462 (Version 1)
Quarter: 2015Q1

REPORT INFORMATION
  Report Type: Not Available
  Country: US (occurrence: US)
  Receive Date: 20150109
  Receipt Date: 20150109
  Transmission Date: 20150721
  Serious: No
  Sender: FDA-Public Use
  Company Number: US-LUPIN PHARMACEUTICALS INC.-E2B_00002619

PATIENT
  Age: 3 Year
  Sex: Female

DRUGS (1)
  1. CEFDINIR FOR ORAL SUSPENSION USP 250 MG /5 ML [Suspect]
     Active Substance: CEFDINIR
     Indication: EAR INFECTION
     Dosage: 200 MG (4 ML)
     Dates: start: 20141014

REACTIONS (1)
  - Pyrexia [Unknown]

NARRATIVE: CASE EVENT DATE: 20141014
